FAERS Safety Report 17655291 (Version 6)
Quarter: 2021Q1

REPORT INFORMATION
  Report Type: Spontaneous
  Country: US (occurrence: US)
  Receive Date: 20200410
  Receipt Date: 20210305
  Transmission Date: 20210419
  Serious: No
  Sender: FDA-Public Use
  Company Number: US-SA-2020SA087504

PATIENT
  Age: 59 Year
  Sex: Female

DRUGS (6)
  1. DUPIXENT [Suspect]
     Active Substance: DUPILUMAB
     Dosage: 300 MG, QOW
     Route: 058
     Dates: start: 2020
  2. TOBRAMYCIN. [Concomitant]
     Active Substance: TOBRAMYCIN
  3. SHINGRIX [Concomitant]
     Active Substance: RECOMBINANT VARICELLA ZOSTER VIRUS (VZV) GLYCOPROTEIN E
     Dosage: 50 MCG/0.5 KIT
     Route: 065
  4. DUPIXENT [Suspect]
     Active Substance: DUPILUMAB
     Indication: DERMATITIS ATOPIC
     Dosage: 300 MG, QOW
     Route: 058
     Dates: start: 202001, end: 2020
  5. LISINOPRIL. [Concomitant]
     Active Substance: LISINOPRIL
  6. VALACYCLOVIR [Concomitant]
     Active Substance: VALACYCLOVIR HYDROCHLORIDE
     Route: 065

REACTIONS (12)
  - Hordeolum [Recovered/Resolved]
  - Joint swelling [Unknown]
  - Masticatory pain [Unknown]
  - Loose tooth [Unknown]
  - Pustule [Unknown]
  - Conjunctivitis [Recovered/Resolved]
  - Blepharitis [Recovered/Resolved]
  - Swelling of eyelid [Recovered/Resolved]
  - Urticaria [Unknown]
  - Eye irritation [Recovering/Resolving]
  - Herpes zoster [Unknown]
  - Rash macular [Unknown]

NARRATIVE: CASE EVENT DATE: 2020
